FAERS Safety Report 24163981 (Version 1)
Quarter: 2024Q3

REPORT INFORMATION
  Report Type: Spontaneous
  Country: US (occurrence: US)
  Receive Date: 20240801
  Receipt Date: 20240801
  Transmission Date: 20241017
  Serious: Yes (Other)
  Sender: UPSHER-SMITH
  Company Number: US-UPSHER-SMITH LABORATORIES, LLC-2024USL00351

PATIENT

DRUGS (2)
  1. VIGADRONE [Suspect]
     Active Substance: VIGABATRIN
     Indication: Infantile spasms
     Dosage: 400 MG (8 ML) BY MOUTH TWICE DAILY AS DIRECTED.
     Route: 048
     Dates: start: 20231013
  2. VIGADRONE [Suspect]
     Active Substance: VIGABATRIN
     Dosage: DOSE INCREASED
     Route: 048

REACTIONS (1)
  - Seizure [Unknown]
